FAERS Safety Report 5553260-8 (Version None)
Quarter: 2007Q4

REPORT INFORMATION
  Report Type: 
  Country: None (occurrence: None)
  Receive Date: 20071212
  Receipt Date: 20070711
  Transmission Date: 20080405
  Serious: No
  Sender: FDA-Public Use
  Company Number: US-AMGEN-KDL233903

PATIENT
  Sex: Male

DRUGS (2)
  1. ENBREL [Suspect]
     Indication: RHEUMATOID ARTHRITIS
     Route: 058
     Dates: start: 20050511
  2. METHOTREXATE [Concomitant]
     Dates: start: 20020101

REACTIONS (2)
  - ARTHRALGIA [None]
  - UMBILICAL HERNIA [None]
